FAERS Safety Report 18396944 (Version 1)
Quarter: 2020Q4

REPORT INFORMATION
  Report Type: Spontaneous
  Country: US (occurrence: US)
  Receive Date: 20201016
  Receipt Date: 20201016
  Transmission Date: 20210114
  Serious: Yes (Other)
  Sender: FDA-Public Use
  Company Number: None

PATIENT
  Age: 33 Year
  Sex: Female
  Weight: 109.6 kg

DRUGS (1)
  1. REMDESIVIR. [Suspect]
     Active Substance: REMDESIVIR
     Indication: COVID-19
     Route: 042
     Dates: start: 20201008, end: 20201008

REACTIONS (5)
  - Angioedema [None]
  - Paraesthesia oral [None]
  - Feeling abnormal [None]
  - Hypoaesthesia oral [None]
  - Urticaria [None]

NARRATIVE: CASE EVENT DATE: 20201008
